FAERS Safety Report 24353297 (Version 2)
Quarter: 2025Q2

REPORT INFORMATION
  Report Type: Spontaneous
  Country: US (occurrence: US)
  Receive Date: 20240923
  Receipt Date: 20250607
  Transmission Date: 20250717
  Serious: No
  Sender: STEMLINE THERAPEUTICS
  Company Number: US-STEMLINE THERAPEUTICS, INC-2024-STML-US000094

PATIENT

DRUGS (5)
  1. ORSERDU [Suspect]
     Active Substance: ELACESTRANT
     Indication: Product used for unknown indication
     Dates: start: 20240730, end: 20240730
  2. MOEXIPRIL [Concomitant]
     Active Substance: MOEXIPRIL
     Indication: Hypertension
  3. HYDROCHLOROTHIAZIDE [Concomitant]
     Active Substance: HYDROCHLOROTHIAZIDE
     Indication: Hypertension
  4. LEVOTHYROXINE [Concomitant]
     Active Substance: LEVOTHYROXINE
     Indication: Thyroid disorder
  5. EXEMESTANE [Concomitant]
     Active Substance: EXEMESTANE
     Indication: Breast cancer

REACTIONS (2)
  - Dyspnoea [Recovered/Resolved]
  - Throat tightness [Recovered/Resolved]

NARRATIVE: CASE EVENT DATE: 20240730
